FAERS Safety Report 23884333 (Version 2)
Quarter: 2024Q4

REPORT INFORMATION
  Report Type: Spontaneous
  Country: US (occurrence: US)
  Receive Date: 20240522
  Receipt Date: 20241001
  Transmission Date: 20250115
  Serious: No
  Sender: CATALYST PHARMA
  Company Number: US-CATALYST PHARMACEUTICALS-US-CATA-24-00260

PATIENT
  Sex: Male
  Weight: 36.281 kg

DRUGS (8)
  1. AGAMREE [Suspect]
     Active Substance: VAMOROLONE
     Indication: Duchenne muscular dystrophy
     Dosage: 4 ML
     Route: 048
     Dates: start: 20240315, end: 2024
  2. AGAMREE [Suspect]
     Active Substance: VAMOROLONE
     Dosage: 3 ML 1X DAILY
     Route: 048
     Dates: start: 2024, end: 2024
  3. AGAMREE [Suspect]
     Active Substance: VAMOROLONE
     Dosage: 2 ML DAILY
     Route: 048
     Dates: start: 2024, end: 2024
  4. AGAMREE [Suspect]
     Active Substance: VAMOROLONE
     Dosage: 3 ML
     Route: 048
     Dates: start: 2024, end: 2024
  5. XYZAL ALLERGY 24 HOURS CHILDREN^S [Concomitant]
     Indication: Product used for unknown indication
     Dosage: 7.5 ML DAILY
     Route: 065
  6. CHILDRENS TYLENOL [Concomitant]
     Active Substance: ACETAMINOPHEN
     Indication: Product used for unknown indication
     Dosage: 320 MG AS NEEDED
     Route: 048
  7. CHILDRENS TYLENOL [Concomitant]
     Active Substance: ACETAMINOPHEN
     Dosage: 220 MG AS NEEDED
     Route: 048
  8. CHILDRENS MOTRIN [Concomitant]
     Active Substance: IBUPROFEN
     Indication: Product used for unknown indication
     Dosage: 100 MG IN 5ML AS NEEDED
     Route: 048

REACTIONS (6)
  - Anger [Not Recovered/Not Resolved]
  - Mood altered [Not Recovered/Not Resolved]
  - Agitation [Not Recovered/Not Resolved]
  - Insomnia [Not Recovered/Not Resolved]
  - Increased appetite [Not Recovered/Not Resolved]
  - Weight increased [Not Recovered/Not Resolved]

NARRATIVE: CASE EVENT DATE: 20240101
